FAERS Safety Report 21240618 (Version 1)
Quarter: 2022Q3

REPORT INFORMATION
  Report Type: Spontaneous
  Country: US (occurrence: None)
  Receive Date: 20220823
  Receipt Date: 20220823
  Transmission Date: 20221027
  Serious: No
  Sender: FDA-Public Use
  Company Number: 2022A276951

PATIENT
  Sex: Female

DRUGS (1)
  1. TAGRISSO [Suspect]
     Active Substance: OSIMERTINIB
     Indication: Lung neoplasm malignant
     Dosage: 40.0MG UNKNOWN
     Route: 048

REACTIONS (4)
  - Nail growth abnormal [Unknown]
  - Ingrowing nail [Unknown]
  - Nail discolouration [Unknown]
  - Onychoclasis [Unknown]
